FAERS Safety Report 17257446 (Version 1)
Quarter: 2020Q1

REPORT INFORMATION
  Report Type: Spontaneous
  Country: DE (occurrence: DE)
  Receive Date: 20200110
  Receipt Date: 20200110
  Transmission Date: 20200409
  Serious: Yes (Hospitalization)
  Sender: FDA-Public Use
  Company Number: DE-DIAGNOSTIC GREEN GMBH-2078818

PATIENT
  Age: 69 Year
  Sex: Female

DRUGS (1)
  1. INDOCYANINE GREEN FOR INJECTION USP, 25 MG [Suspect]
     Active Substance: INDOCYANINE GREEN
     Indication: FLUORESCENCE ANGIOGRAM
     Route: 040

REACTIONS (1)
  - Cerebral vasoconstriction [Recovered/Resolved]
